FAERS Safety Report 12581150 (Version 1)
Quarter: 2016Q3

REPORT INFORMATION
  Report Type: Report from Study
  Country: CA (occurrence: CA)
  Receive Date: 20160721
  Receipt Date: 20160721
  Transmission Date: 20161109
  Serious: Yes (Hospitalization)
  Sender: FDA-Public Use
  Company Number: CA-JNJFOC-20160604804

PATIENT
  Age: 50 Year
  Sex: Male
  Weight: 110.9 kg

DRUGS (3)
  1. REMICADE [Suspect]
     Active Substance: INFLIXIMAB
     Indication: COLITIS ULCERATIVE
     Route: 042
     Dates: start: 20160603
  2. MEZAVANT [Concomitant]
     Active Substance: MESALAMINE
     Dosage: 4 TABLETS DAILY
     Route: 048
  3. REMICADE [Suspect]
     Active Substance: INFLIXIMAB
     Indication: COLITIS ULCERATIVE
     Route: 042
     Dates: start: 20131018

REACTIONS (5)
  - Diverticulitis [Recovering/Resolving]
  - Product use issue [Unknown]
  - Off label use [Unknown]
  - Inappropriate schedule of drug administration [Unknown]
  - Eyelid disorder [Recovered/Resolved]

NARRATIVE: CASE EVENT DATE: 20131018
